FAERS Safety Report 11256699 (Version 1)
Quarter: 2015Q3

REPORT INFORMATION
  Report Type: Spontaneous
  Country: US (occurrence: US)
  Receive Date: 20150709
  Receipt Date: 20150709
  Transmission Date: 20151125
  Serious: Yes (Hospitalization, Other)
  Sender: FDA-Public Use
  Company Number: US-GLAXOSMITHKLINE-US2015GSK097728

PATIENT
  Sex: Male

DRUGS (1)
  1. ADVAIR DISKUS [Suspect]
     Active Substance: FLUTICASONE PROPIONATE\SALMETEROL XINAFOATE
     Indication: CHRONIC OBSTRUCTIVE PULMONARY DISEASE
     Dosage: UNK, U
     Route: 055
     Dates: start: 2011

REACTIONS (5)
  - Intra-abdominal haemorrhage [Recovered/Resolved]
  - Infusion site inflammation [Unknown]
  - Volume blood decreased [Unknown]
  - Thrombosis [Unknown]
  - Vascular cauterisation [Recovered/Resolved]

NARRATIVE: CASE EVENT DATE: 2015
